FAERS Safety Report 10026231 (Version 1)
Quarter: 2014Q1

REPORT INFORMATION
  Report Type: Spontaneous
  Country: US (occurrence: US)
  Receive Date: 20140320
  Receipt Date: 20140320
  Transmission Date: 20141002
  Serious: No
  Sender: FDA-Public Use
  Company Number: US-ALLERGAN-1315867US

PATIENT
  Age: 80 Year
  Sex: Female

DRUGS (13)
  1. LUMIGAN 0.01% [Suspect]
     Indication: GLAUCOMA
     Dosage: 1 GTT, QHS
     Route: 047
  2. LUMIGAN 0.01% [Suspect]
     Dosage: UNK
  3. CARVEDILOL [Concomitant]
     Indication: CARDIAC DISORDER
     Dosage: UNK
  4. COREG [Concomitant]
     Indication: CARDIAC DISORDER
     Dosage: UNK
  5. DIOVAN [Concomitant]
     Indication: CARDIAC DISORDER
     Dosage: UNK
  6. COSOPT [Concomitant]
     Indication: GLAUCOMA
     Dosage: 1 GTT, BID
  7. ARTIFICIAL TEARS NOS [Concomitant]
     Indication: DRY EYE
     Dosage: UNK
  8. ATORVASTATIN [Concomitant]
     Indication: BLOOD CHOLESTEROL
     Dosage: UNK
  9. BABY ASPIRUN NOS [Concomitant]
     Indication: PRODUCT USED FOR UNKNOWN INDICATION
     Dosage: UNK
  10. FERROUS SULFATE [Concomitant]
     Indication: BLOOD IRON
     Dosage: UNK
  11. MULTIVITAMIN                       /00097801/ [Concomitant]
     Indication: PRODUCT USED FOR UNKNOWN INDICATION
     Dosage: UNK
  12. OSTEO-BIFLEX NOS [Concomitant]
     Indication: ARTHRITIS
     Dosage: UNK
  13. PREVACID [Concomitant]
     Indication: GASTROOESOPHAGEAL REFLUX DISEASE
     Dosage: UNK

REACTIONS (2)
  - Lacrimation increased [Unknown]
  - Dry eye [Unknown]
